FAERS Safety Report 4777467-2 (Version None)
Quarter: 2005Q3

REPORT INFORMATION
  Report Type: 
  Country: None (occurrence: None)
  Receive Date: 20050921
  Receipt Date: 20050908
  Transmission Date: 20060218
  Serious: Yes (Hospitalization, Other)
  Sender: FDA-Public Use
  Company Number: H-CH2005-10568

PATIENT
  Age: 34 Year
  Sex: Female
  Weight: 87.5 kg

DRUGS (13)
  1. BOSENTAN (BOSENTAN I.EIS TABLET 125 MG) TABLET [Suspect]
     Indication: PULMONARY HYPERTENSION
     Dosage: SEE IMAGE
     Route: 048
     Dates: start: 20050415, end: 20050511
  2. BOSENTAN (BOSENTAN I.EIS TABLET 125 MG) TABLET [Suspect]
     Indication: PULMONARY HYPERTENSION
     Dosage: SEE IMAGE
     Route: 048
     Dates: start: 20050512
  3. SPIRONOLACTONE [Concomitant]
  4. ALBUTEROL SULFATE HFA [Concomitant]
  5. BECLOMETHASONE DIPROPIONATE [Concomitant]
  6. ALLOPURINOL [Concomitant]
  7. DIGOXIN [Concomitant]
  8. FERROUS SULPHATE (FERROUS SULFATE) [Concomitant]
  9. NIFEDIPINE [Concomitant]
  10. FUROSEMIDE [Concomitant]
  11. WARFARIN (WARFARIN) [Concomitant]
  12. NORETHISTERONE (NORETHISTERONE) [Concomitant]
  13. BOSENTAN [Suspect]
     Indication: PULMONARY HYPERTENSION
     Dosage: 62.5 MG, BID, ORAL
     Route: 048
     Dates: start: 20050415, end: 20050511

REACTIONS (8)
  - DIZZINESS [None]
  - HAEMATOCRIT INCREASED [None]
  - HAEMOGLOBIN INCREASED [None]
  - NAUSEA [None]
  - PALPITATIONS [None]
  - PLATELET COUNT DECREASED [None]
  - RED BLOOD CELL COUNT INCREASED [None]
  - VENTRICULAR EXTRASYSTOLES [None]
